FAERS Safety Report 5367118-0 (Version None)
Quarter: 2007Q2

REPORT INFORMATION
  Report Type: 
  Country: None (occurrence: None)
  Receive Date: 20070622
  Receipt Date: 20060710
  Transmission Date: 20071010
  Serious: No
  Sender: FDA-Public Use
  Company Number: US-BRISTOL-MYERS SQUIBB COMPANY-13437249

PATIENT
  Age: 68 Year
  Sex: Female
  Weight: 57 kg

DRUGS (11)
  1. SINEMET [Suspect]
     Indication: PARKINSON'S DISEASE
     Dosage: THE PATIENT IS TAKING SINEMET 25/100 MG.
     Route: 048
     Dates: start: 19990101
  2. AMITIZA [Suspect]
     Route: 048
     Dates: start: 20060517
  3. RANITIDINE [Concomitant]
  4. VALIUM [Concomitant]
  5. PREMARIN [Concomitant]
  6. PROVERA [Concomitant]
  7. SYNTHROID [Concomitant]
  8. CELEBREX [Concomitant]
  9. ESGIC [Concomitant]
  10. DIAZEPAM [Concomitant]
  11. DIAZEPAM [Concomitant]
     Route: 048

REACTIONS (1)
  - HALLUCINATION [None]
